FAERS Safety Report 8221425-2 (Version None)
Quarter: 2012Q1

REPORT INFORMATION
  Report Type: 
  Country: None (occurrence: None)
  Receive Date: 20120307
  Receipt Date: 20110624
  Transmission Date: 20120608
  Serious: Yes (Other)
  Sender: FDA-Public Use
  Company Number: PHHY2011US31906

PATIENT
  Age: 57 Year
  Sex: Female

DRUGS (10)
  1. PROTONIX [Concomitant]
  2. PRILOSEC [Concomitant]
  3. OXYCONTIN [Concomitant]
  4. OXYCODONE HCL [Concomitant]
  5. FOSAMAX [Concomitant]
  6. AFINITOR [Suspect]
     Indication: RENAL CANCER
     Dosage: 10 MG, QD, ORAL; 10 MG, DAILY, ORAL
     Route: 048
     Dates: start: 20110509
  7. AFINITOR [Suspect]
     Indication: RENAL CANCER
     Dosage: 10 MG, QD, ORAL; 10 MG, DAILY, ORAL
     Route: 048
     Dates: start: 20110324
  8. SUTENT [Concomitant]
  9. ATENOLOL [Concomitant]
  10. MULTIVITAMINS (ASCORBIC ACID, ERGOCALCIFEROL, FOLIC ACID, NICOTINAMIDE [Concomitant]

REACTIONS (5)
  - MOUTH ULCERATION [None]
  - INFECTION [None]
  - ORAL PAIN [None]
  - RASH [None]
  - NAIL DISORDER [None]
